FAERS Safety Report 23411083 (Version 1)
Quarter: 2024Q1

REPORT INFORMATION
  Report Type: Spontaneous
  Country: US (occurrence: US)
  Receive Date: 20240117
  Receipt Date: 20240117
  Transmission Date: 20240410
  Serious: No
  Sender: FDA-Public Use
  Company Number: US-SK LIFE SCIENCE, INC-SKPVG-2023-000359

PATIENT

DRUGS (2)
  1. XCOPRI [Suspect]
     Active Substance: CENOBAMATE
     Indication: Seizure
     Dosage: UNK
     Route: 048
     Dates: start: 20230125
  2. XCOPRI [Suspect]
     Active Substance: CENOBAMATE
     Dosage: 100MG, ONCE DAILY AT BEDTIME
     Route: 048

REACTIONS (10)
  - Seizure [Unknown]
  - Fall [Recovered/Resolved]
  - Limb discomfort [Recovered/Resolved]
  - Muscle spasms [Unknown]
  - Pain [Unknown]
  - Skin erosion [Not Recovered/Not Resolved]
  - Paraesthesia [Unknown]
  - Aphasia [Unknown]
  - Abdominal pain upper [Unknown]
  - Nausea [Unknown]

NARRATIVE: CASE EVENT DATE: 20230218
